FAERS Safety Report 14477586 (Version 1)
Quarter: 2018Q1

REPORT INFORMATION
  Report Type: Report from Study
  Country: US (occurrence: US)
  Receive Date: 20180201
  Receipt Date: 20180201
  Transmission Date: 20180509
  Serious: No
  Sender: FDA-Public Use
  Company Number: US-EXELIXIS-CABO-17009251

PATIENT
  Sex: Female

DRUGS (5)
  1. THYROID [Concomitant]
     Active Substance: LEVOTHYROXINE\LIOTHYRONINE
  2. COMETRIQ [Suspect]
     Active Substance: CABOZANTINIB S-MALATE
     Dosage: 40 MG, QD
     Route: 048
  3. COMETRIQ [Suspect]
     Active Substance: CABOZANTINIB S-MALATE
     Indication: THYROID CANCER
     Dosage: 100 MG, QD
     Route: 048
     Dates: start: 20170426, end: 2017
  4. COMETRIQ [Suspect]
     Active Substance: CABOZANTINIB S-MALATE
     Dosage: 80 MG, QD
     Route: 048
     Dates: start: 2017, end: 201706
  5. COMETRIQ [Suspect]
     Active Substance: CABOZANTINIB S-MALATE
     Dosage: 60 MG, QD
     Route: 048
     Dates: start: 201706, end: 20170722

REACTIONS (7)
  - Gingival pain [Unknown]
  - Paraesthesia oral [Not Recovered/Not Resolved]
  - Throat irritation [Not Recovered/Not Resolved]
  - Weight decreased [Unknown]
  - Tongue discomfort [Unknown]
  - Oral discomfort [Not Recovered/Not Resolved]
  - Erythema [Unknown]
